FAERS Safety Report 22268368 (Version 1)
Quarter: 2023Q2

REPORT INFORMATION
  Report Type: Spontaneous
  Country: US (occurrence: US)
  Receive Date: 20230430
  Receipt Date: 20230430
  Transmission Date: 20230722
  Serious: No
  Sender: FDA-Public Use
  Company Number: US-SANOFI-01586316

PATIENT
  Age: 64 Year
  Sex: Female

DRUGS (2)
  1. TOUJEO [Suspect]
     Active Substance: INSULIN GLARGINE
     Indication: Diabetes mellitus
     Dosage: 56 U QD
     Dates: start: 202211
  2. FIASP [Concomitant]
     Active Substance: INSULIN ASPART

REACTIONS (2)
  - Diabetic eye disease [Recovered/Resolved]
  - Visual impairment [Unknown]
